FAERS Safety Report 7777195-5 (Version None)
Quarter: 2011Q3

REPORT INFORMATION
  Report Type: 
  Country: None (occurrence: None)
  Receive Date: 20110926
  Receipt Date: 20110915
  Transmission Date: 20111222
  Serious: Yes (Hospitalization, Other)
  Sender: FDA-Public Use
  Company Number: US-PFIZER INC-AUR-APL-2009-00008

PATIENT
  Age: 65 Year
  Sex: Female
  Weight: 100 kg

DRUGS (7)
  1. ENALAPRIL [Suspect]
  2. CITALOPRAM [Suspect]
  3. ESCITALOPRAM OXALATE [Suspect]
  4. ATENOLOL [Suspect]
  5. AMITRIPTYLINE HCL [Suspect]
  6. TRAZODONE HCL [Suspect]
  7. QUINAPRIL HCL [Suspect]

REACTIONS (10)
  - COMA [None]
  - RESPIRATORY ARREST [None]
  - CARDIOTOXICITY [None]
  - MULTIPLE DRUG OVERDOSE [None]
  - VENTRICULAR ARRHYTHMIA [None]
  - PULSELESS ELECTRICAL ACTIVITY [None]
  - HYPOTENSION [None]
  - VENTRICULAR TACHYCARDIA [None]
  - CARDIOGENIC SHOCK [None]
  - CONVULSION [None]
